FAERS Safety Report 14910041 (Version 3)
Quarter: 2018Q3

REPORT INFORMATION
  Report Type: Spontaneous
  Country: US (occurrence: US)
  Receive Date: 20180517
  Receipt Date: 20180726
  Transmission Date: 20181010
  Serious: No
  Sender: FDA-Public Use
  Company Number: US-PFIZER INC-2018201494

PATIENT
  Sex: Female

DRUGS (1)
  1. PREMPHASE [Suspect]
     Active Substance: ESTROGENS, CONJUGATED\MEDROXYPROGESTERONE ACETATE
     Dosage: UNK [ESTROGENS CONJUGATED: 0.625MG]/ [MEDROXYPROGESTERONE ACETATE: 5MG]

REACTIONS (1)
  - Drug ineffective [Unknown]
